FAERS Safety Report 15027419 (Version 1)
Quarter: 2018Q2

REPORT INFORMATION
  Report Type: Spontaneous
  Country: DE (occurrence: DE)
  Receive Date: 20180619
  Receipt Date: 20180619
  Transmission Date: 20180711
  Serious: Yes (Hospitalization)
  Sender: FDA-Public Use
  Company Number: DE-TEVA-2018-DE-908749

PATIENT
  Age: 53 Year
  Sex: Female

DRUGS (2)
  1. CARBAMAZEPINE. [Suspect]
     Active Substance: CARBAMAZEPINE
     Dosage: 200 MG, 1-0-1-0
  2. CLONIDIN [Suspect]
     Active Substance: CLONIDINE
     Dosage: 150 MILLIGRAM DAILY; 150 MG, 1-0-0-0

REACTIONS (3)
  - Decreased appetite [Unknown]
  - Dizziness [Unknown]
  - Drug prescribing error [Unknown]
